FAERS Safety Report 19920084 (Version 1)
Quarter: 2021Q4

REPORT INFORMATION
  Report Type: Spontaneous
  Country: US (occurrence: US)
  Receive Date: 20211005
  Receipt Date: 20211005
  Transmission Date: 20220303
  Serious: No
  Sender: FDA-Public Use
  Company Number: US-GSKCCFUS-CASE-01178934_AE-69045

PATIENT
  Age: 59 Year
  Sex: Female

DRUGS (2)
  1. SEREVENT DISKUS [Suspect]
     Active Substance: SALMETEROL XINAFOATE
     Indication: Product used for unknown indication
     Dosage: 1 PUFF(S), BID
     Route: 055
     Dates: start: 202109
  2. ADVAIR DISKUS [Suspect]
     Active Substance: FLUTICASONE PROPIONATE\SALMETEROL XINAFOATE
     Indication: Product used for unknown indication
     Dosage: UNK
     Route: 055

REACTIONS (7)
  - Tremor [Not Recovered/Not Resolved]
  - Restlessness [Not Recovered/Not Resolved]
  - Nervousness [Not Recovered/Not Resolved]
  - Oropharyngeal pain [Recovered/Resolved]
  - Cough [Recovered/Resolved]
  - Productive cough [Recovered/Resolved]
  - Throat clearing [Unknown]

NARRATIVE: CASE EVENT DATE: 20210901
